FAERS Safety Report 12262464 (Version 2)
Quarter: 2016Q3

REPORT INFORMATION
  Report Type: Report from Study
  Country: JP (occurrence: JP)
  Receive Date: 20160413
  Receipt Date: 20160714
  Transmission Date: 20161109
  Serious: Yes (Death, Hospitalization)
  Sender: FDA-Public Use
  Company Number: JP-EISAI MEDICAL RESEARCH-EC-2016-015894

PATIENT
  Age: 61 Year
  Sex: Female
  Weight: 44 kg

DRUGS (7)
  1. LASIX [Concomitant]
     Active Substance: FUROSEMIDE
  2. HALAVEN [Suspect]
     Active Substance: ERIBULIN MESYLATE
     Route: 041
     Dates: start: 20151022, end: 20151022
  3. BROTIZOLAM [Concomitant]
     Active Substance: BROTIZOLAM
  4. MAGLAX [Concomitant]
     Active Substance: MAGNESIUM OXIDE
  5. ACETAMINOPHEN. [Concomitant]
     Active Substance: ACETAMINOPHEN
  6. HALAVEN [Suspect]
     Active Substance: ERIBULIN MESYLATE
     Route: 041
     Dates: start: 20151119, end: 20151203
  7. HALAVEN [Suspect]
     Active Substance: ERIBULIN MESYLATE
     Indication: INVASIVE BREAST CARCINOMA
     Route: 041
     Dates: start: 20150827, end: 20150827

REACTIONS (8)
  - Cardiac tamponade [Recovering/Resolving]
  - Renal failure [Fatal]
  - Alanine aminotransferase increased [Recovered/Resolved]
  - Aspartate aminotransferase increased [Recovered/Resolved]
  - Postrenal failure [Recovered/Resolved]
  - Leukopenia [Recovered/Resolved]
  - Heart injury [Recovering/Resolving]
  - Neutropenia [Recovered/Resolved]

NARRATIVE: CASE EVENT DATE: 20150905
